FAERS Safety Report 13460935 (Version 2)
Quarter: 2017Q3

REPORT INFORMATION
  Report Type: Report from Study
  Country: PT (occurrence: PT)
  Receive Date: 20170420
  Receipt Date: 20170801
  Transmission Date: 20171127
  Serious: Yes (Hospitalization)
  Sender: FDA-Public Use
  Company Number: PT-ROCHE-1008959

PATIENT
  Age: 46 Year
  Sex: Female
  Weight: 64.6 kg

DRUGS (10)
  1. TRASTUZUMAB EMTANSINE [Suspect]
     Active Substance: ADO-TRASTUZUMAB EMTANSINE
     Indication: HER-2 POSITIVE BREAST CANCER
     Dosage: LAST DOSE PRIOR TO SAE ON 28/OCT/2011
     Route: 042
     Dates: start: 20111028
  2. PARACETAMOL [Concomitant]
     Active Substance: ACETAMINOPHEN
     Route: 065
     Dates: start: 2011
  3. CLEMASTINE [Concomitant]
     Active Substance: CLEMASTINE
     Route: 065
     Dates: start: 20111028, end: 20111028
  4. ENOXAPARIN [Concomitant]
     Active Substance: ENOXAPARIN
     Route: 065
     Dates: start: 20111006
  5. BROMAZEPAM [Concomitant]
     Active Substance: BROMAZEPAM
     Indication: ANXIETY
     Route: 065
     Dates: start: 2011, end: 20111111
  6. ESOMEPRAZOLE [Concomitant]
     Active Substance: ESOMEPRAZOLE
     Route: 065
     Dates: start: 20111028, end: 20111028
  7. HYDROCORTISONE. [Concomitant]
     Active Substance: HYDROCORTISONE
     Route: 065
     Dates: start: 20111028, end: 20111028
  8. VALDISPERT [Concomitant]
     Active Substance: HERBALS
     Indication: ANXIETY
     Route: 065
     Dates: start: 20111027, end: 20111118
  9. LEPICORTINOLO [Concomitant]
     Active Substance: PREDNISOLONE
     Route: 065
     Dates: start: 20111006, end: 20111024
  10. PERTUZUMAB. [Suspect]
     Active Substance: PERTUZUMAB
     Indication: HER-2 POSITIVE BREAST CANCER
     Dosage: THIS WAS ALSO THE MOST RECENT DOSE OF PERTUZUMAB
     Route: 042
     Dates: start: 20111028

REACTIONS (1)
  - Malaise [Recovered/Resolved]

NARRATIVE: CASE EVENT DATE: 20111028
